FAERS Safety Report 10255896 (Version 3)
Quarter: 2014Q3

REPORT INFORMATION
  Report Type: Spontaneous
  Country: JP (occurrence: JP)
  Receive Date: 20140624
  Receipt Date: 20140813
  Transmission Date: 20150326
  Serious: Yes (Hospitalization, Other)
  Sender: FDA-Public Use
  Company Number: JP-BRISTOL-MYERS SQUIBB COMPANY-21080130

PATIENT
  Age: 70 Year
  Sex: Female

DRUGS (3)
  1. SEIBULE [Suspect]
     Active Substance: MIGLITOL
     Dosage: TABLET
     Route: 048
     Dates: start: 201301, end: 20140513
  2. LANTUS [Suspect]
     Active Substance: INSULIN GLARGINE
     Dates: start: 201301, end: 20140419
  3. ONGLYZA [Suspect]
     Active Substance: SAXAGLIPTIN HYDROCHLORIDE
     Indication: DIABETIC NEPHROPATHY
     Route: 048
     Dates: start: 20130901, end: 20140527

REACTIONS (2)
  - Dialysis [Unknown]
  - Hypoglycaemia [Recovered/Resolved]

NARRATIVE: CASE EVENT DATE: 20140513
